FAERS Safety Report 10715637 (Version 1)
Quarter: 2015Q1

REPORT INFORMATION
  Report Type: Spontaneous
  Country: US (occurrence: None)
  Receive Date: 20150105
  Receipt Date: 20150105
  Transmission Date: 20150721
  Serious: Yes (Other)
  Sender: FDA-Public Use
  Company Number: 2014AP000291

PATIENT
  Age: 62 Year
  Sex: Female

DRUGS (3)
  1. CLARITIN/ 00917501/ (LORATADINE) [Concomitant]
  2. WOMEN^S MULTI (CALCIUM AMINO ACID CHELATE, CALCIUM PANTOTHENATE, NICOTINAMIDE, CHROMIUM AMINO ACID CHELATE,BIOTIN,FOLIC ACID,LAMINARIA DIGITATA POWDER,SELENIUM AMINO ACID CHELATE,THIAMINE MONONITRATE,MANGANESE AMINO ACID CHELATE,PYRIDOXINE HYDROCHLORIDE,BETACAROTENE,FERROUS FUMARATE,RIBOFLAVIN,POTASSIUM AMINO ACID CHELATE,ZINC AMINO ACID CHELATE,OENOTHERA BIENNIS OIL,EQUISETUM ARVENSE STEM,ASCORBIC ACID,COPPER AMINO ACID CHELATE,MAGNESIUM OXIDE,CYANO0OBALAMIN) UNKNOWN [Concomitant]
  3. ENALAPRIL MALEATE AND HYDROCHLOROTHIAZIDE [Suspect]
     Active Substance: ENALAPRIL MALEATE\HYDROCHLOROTHIAZIDE
     Dates: end: 20140113

REACTIONS (3)
  - Hypersensitivity [None]
  - Rash [None]
  - Urticaria [None]

NARRATIVE: CASE EVENT DATE: 201309
